FAERS Safety Report 24075553 (Version 2)
Quarter: 2024Q3

REPORT INFORMATION
  Report Type: Spontaneous
  Country: US (occurrence: US)
  Receive Date: 20240710
  Receipt Date: 20240821
  Transmission Date: 20241017
  Serious: Yes (Disabling)
  Sender: IMPRIMIS CARES - COMPOUNDING
  Company Number: US-Imprimis NJOF, LLC-2159016

PATIENT
  Age: 86 Year
  Sex: Female

DRUGS (1)
  1. MOXIFLOXACIN\TRIAMCINOLONE [Suspect]
     Active Substance: MOXIFLOXACIN\TRIAMCINOLONE
     Indication: Cataract
     Route: 047

REACTIONS (1)
  - Haemorrhagic occlusive retinal vasculitis [Not Recovered/Not Resolved]

NARRATIVE: CASE EVENT DATE: 20240709
